FAERS Safety Report 9577317 (Version 1)
Quarter: 2013Q4

REPORT INFORMATION
  Report Type: Spontaneous
  Country: US (occurrence: US)
  Receive Date: 20131001
  Receipt Date: 20131001
  Transmission Date: 20140711
  Serious: No
  Sender: FDA-Public Use
  Company Number: US-AMGEN-USASP2013008074

PATIENT
  Age: 59 Year
  Sex: Female
  Weight: 61.22 kg

DRUGS (5)
  1. ENBREL [Suspect]
     Indication: RHEUMATOID ARTHRITIS
     Dosage: 25 MG, 2 TIMES/WK
     Route: 058
  2. METHOTREXATE [Concomitant]
     Dosage: 2.5 MG, UNK
  3. BONIVA [Concomitant]
     Dosage: 150 MG, UNK
  4. MOBIC [Concomitant]
     Dosage: 15 MG, UNK
  5. CALCIUM [Concomitant]
     Dosage: 500 MG, UNK

REACTIONS (1)
  - Gastroenteritis viral [Unknown]
